FAERS Safety Report 4403127-3 (Version None)
Quarter: 2004Q3

REPORT INFORMATION
  Report Type: 
  Country: None (occurrence: None)
  Receive Date: 20040721
  Receipt Date: 20040512
  Transmission Date: 20050211
  Serious: No
  Sender: FDA-Public Use
  Company Number: US-GLAXOSMITHKLINE-A0510549A

PATIENT
  Age: 65 Year
  Sex: Female

DRUGS (5)
  1. IMITREX [Suspect]
     Indication: MIGRAINE
     Dosage: 50MG MONTHLY
     Route: 048
  2. PRILOSEC [Concomitant]
     Route: 048
  3. PROZAC [Concomitant]
     Route: 048
  4. WELLBUTRIN [Concomitant]
     Route: 048
  5. IMODIUM [Concomitant]
     Route: 065

REACTIONS (2)
  - CHEST PAIN [None]
  - DRUG INEFFECTIVE [None]
